FAERS Safety Report 9215004 (Version 1)
Quarter: 2013Q2

REPORT INFORMATION
  Report Type: Spontaneous
  Country: BR (occurrence: BR)
  Receive Date: 20130405
  Receipt Date: 20130405
  Transmission Date: 20140414
  Serious: Yes (Hospitalization)
  Sender: FDA-Public Use
  Company Number: PHHY2013BR032132

PATIENT
  Age: 17 Year
  Sex: Male

DRUGS (8)
  1. VINCRISTINE [Suspect]
     Indication: BURKITT^S LYMPHOMA
  2. METHOTREXATE [Suspect]
     Indication: BURKITT^S LYMPHOMA
  3. IFOSFAMIDE [Suspect]
     Indication: BURKITT^S LYMPHOMA
  4. CARBOPLATIN [Suspect]
     Indication: BURKITT^S LYMPHOMA
  5. ETOPOSIDE [Suspect]
     Indication: BURKITT^S LYMPHOMA
  6. DOXORUBICIN [Suspect]
     Indication: BURKITT^S LYMPHOMA
  7. PREDNISONE [Suspect]
     Indication: BURKITT^S LYMPHOMA
  8. CYCLOPHOSPHAMIDE [Suspect]
     Indication: BURKITT^S LYMPHOMA

REACTIONS (8)
  - Respiratory failure [Recovering/Resolving]
  - Pleural effusion [Recovering/Resolving]
  - Febrile neutropenia [Recovering/Resolving]
  - Lung infection [Recovering/Resolving]
  - Pyrexia [Recovering/Resolving]
  - Cough [Recovering/Resolving]
  - Fungal infection [Recovering/Resolving]
  - Haemoptysis [Recovering/Resolving]
